FAERS Safety Report 6506414-8 (Version None)
Quarter: 2009Q4

REPORT INFORMATION
  Report Type: 
  Country: None (occurrence: None)
  Receive Date: 20091220
  Receipt Date: 20091215
  Transmission Date: 20100525
  Serious: Yes (Death)
  Sender: FDA-Public Use
  Company Number: US-BRISTOL-MYERS SQUIBB COMPANY-14896971

PATIENT
  Age: 62 Year
  Sex: Female

DRUGS (15)
  1. CYTOXAN [Suspect]
     Indication: BREAST CANCER STAGE II
     Dates: start: 20091113, end: 20091113
  2. TAXOTERE [Suspect]
     Indication: BREAST CANCER STAGE II
     Route: 051
     Dates: start: 20091113, end: 20091113
  3. ACTOS [Concomitant]
  4. COUMADIN [Concomitant]
  5. DIOVAN [Concomitant]
  6. GLUCOPHAGE [Concomitant]
  7. JANUVIA [Concomitant]
  8. LASIX [Concomitant]
  9. LYRICA [Concomitant]
  10. MULTI-VITAMINS [Concomitant]
  11. PERCOCET [Concomitant]
  12. OXYCONTIN [Concomitant]
     Dates: start: 20091001
  13. ZOCOR [Concomitant]
  14. TRAZODONE HCL [Concomitant]
  15. TRICOR [Concomitant]

REACTIONS (4)
  - HEPATIC FAILURE [None]
  - NECROTISING COLITIS [None]
  - RENAL FAILURE [None]
  - RESPIRATORY FAILURE [None]
